FAERS Safety Report 4772042-8 (Version None)
Quarter: 2005Q3

REPORT INFORMATION
  Report Type: 
  Country: None (occurrence: None)
  Receive Date: 20050916
  Receipt Date: 20050831
  Transmission Date: 20060218
  Serious: Yes (Life-Threatening, Other)
  Sender: FDA-Public Use
  Company Number: 2004S1002870

PATIENT
  Age: 51 Year
  Sex: Male
  Weight: 272.8 kg

DRUGS (4)
  1. CLONIDINE HYDROCHLORIDE TABLETS, USP (0.3 MG) [Suspect]
     Dosage: SEE IMAGE
     Dates: start: 20010701, end: 20021210
  2. CLONIDINE HYDROCHLORIDE TABLETS, USP (0.3 MG) [Suspect]
     Dosage: SEE IMAGE
     Dates: start: 20021213, end: 20030901
  3. FAMOTIDINE [Concomitant]
  4. HYDROCHLOROTHIAZIDE/BENAZEPRIL HYDROCHLORIDE [Concomitant]

REACTIONS (7)
  - DIABETES MELLITUS NON-INSULIN-DEPENDENT [None]
  - DYSPEPSIA [None]
  - HEPATITIS [None]
  - HYPERLIPIDAEMIA [None]
  - HYPERTENSION [None]
  - OBESITY [None]
  - TINEA INFECTION [None]
